FAERS Safety Report 19000656 (Version 1)
Quarter: 2021Q1

REPORT INFORMATION
  Report Type: Spontaneous
  Country: US (occurrence: US)
  Receive Date: 20210312
  Receipt Date: 20210312
  Transmission Date: 20210420
  Serious: No
  Sender: FDA-Public Use
  Company Number: US-JNJFOC-20210303128

PATIENT
  Age: 47 Year
  Sex: Female

DRUGS (1)
  1. WOMENS ROGAINE UNSCENTED [Suspect]
     Active Substance: MINOXIDIL
     Indication: ALOPECIA
     Dosage: HALF OF CUP EVERY DAY
     Route: 061
     Dates: start: 20200630

REACTIONS (3)
  - Hair texture abnormal [Not Recovered/Not Resolved]
  - Therapeutic product effect incomplete [Unknown]
  - Trichorrhexis [Not Recovered/Not Resolved]

NARRATIVE: CASE EVENT DATE: 20200830
